FAERS Safety Report 17523955 (Version 1)
Quarter: 2020Q1

REPORT INFORMATION
  Report Type: Spontaneous
  Country: FR (occurrence: FR)
  Receive Date: 20200311
  Receipt Date: 20200311
  Transmission Date: 20200409
  Serious: Yes (Other)
  Sender: FDA-Public Use
  Company Number: FR-AUROBINDO-AUR-APL-2020-011710

PATIENT

DRUGS (1)
  1. TENOFOVIR + EMTRICITABINE FILM COATED TABLETS [Suspect]
     Active Substance: EMTRICITABINE\TENOFOVIR
     Indication: HIV INFECTION
     Dosage: UNK
     Route: 065
     Dates: start: 201702

REACTIONS (11)
  - Back pain [Unknown]
  - CD8 lymphocytes increased [Unknown]
  - Blood cholesterol increased [Unknown]
  - Off label use [Unknown]
  - Swelling [Unknown]
  - Dizziness [Not Recovered/Not Resolved]
  - Muscle disorder [Unknown]
  - High density lipoprotein decreased [Unknown]
  - Cervical cord compression [Unknown]
  - Neck pain [Unknown]
  - Congenital spinal fusion [Unknown]
